FAERS Safety Report 12983663 (Version 1)
Quarter: 2016Q4

REPORT INFORMATION
  Report Type: Spontaneous
  Country: JP (occurrence: JP)
  Receive Date: 20161129
  Receipt Date: 20161129
  Transmission Date: 20170207
  Serious: Yes (Other)
  Sender: FDA-Public Use
  Company Number: JP-TEVA-714595ISR

PATIENT
  Age: 63 Year
  Sex: Male

DRUGS (8)
  1. NEDAPLATIN [Suspect]
     Active Substance: NEDAPLATIN
     Indication: SQUAMOUS CELL CARCINOMA OF THE HYPOPHARYNX
     Dosage: 80 MG/M2 DAILY;
     Route: 048
  2. SODIUM ALGINATE [Suspect]
     Active Substance: SODIUM ALGINATE
     Route: 048
  3. ATENOLOL. [Suspect]
     Active Substance: ATENOLOL
     Route: 048
  4. URSO [Suspect]
     Active Substance: URSODIOL
     Indication: CHRONIC HEPATITIS
     Route: 048
  5. PREGABALIN. [Suspect]
     Active Substance: PREGABALIN
     Route: 048
  6. TEGAFUR/GIMERACIL/OTERACIL POTASSIUM [Suspect]
     Active Substance: GIMERACIL\OTERACIL\TEGAFUR
     Indication: SQUAMOUS CELL CARCINOMA OF THE HYPOPHARYNX
     Dosage: 60 MG/M2 DAILY;
     Route: 048
  7. MEFENAMIC ACID. [Suspect]
     Active Substance: MEFENAMIC ACID
     Route: 048
  8. ZYLORIC (ALLOPURINOL) [Suspect]
     Active Substance: ALLOPURINOL
     Route: 048

REACTIONS (3)
  - Disseminated intravascular coagulation [Unknown]
  - Diarrhoea [Unknown]
  - Pyrexia [Unknown]
